FAERS Safety Report 7730580-X (Version None)
Quarter: 2011Q3

REPORT INFORMATION
  Report Type: 
  Country: None (occurrence: None)
  Receive Date: 20110906
  Receipt Date: 20110825
  Transmission Date: 20111222
  Serious: Yes (Life-Threatening, Hospitalization)
  Sender: FDA-Public Use
  Company Number: JP-NOVOPROD-327341

PATIENT

DRUGS (11)
  1. INNOLET 30R CHU [Suspect]
     Indication: TYPE 2 DIABETES MELLITUS
     Dosage: 11 U, QD
     Route: 058
  2. GLUCOBAY [Suspect]
     Indication: PRODUCT USED FOR UNKNOWN INDICATION
     Dosage: 50 MG, QD
     Route: 048
  3. DIOVAN [Concomitant]
     Dosage: 80 MG, QD
     Route: 048
  4. INNOLET 30R CHU [Suspect]
     Dosage: 45 IU, QD
     Route: 058
     Dates: start: 20100803, end: 20100803
  5. ASPIRIN [Concomitant]
     Dosage: 100 MG, QD
     Route: 048
  6. NIZATIDINE [Concomitant]
     Dosage: UNK
     Route: 048
  7. TEPRENONE [Concomitant]
     Dosage: UNK
     Route: 048
  8. NIZATIDINE [Concomitant]
     Dosage: 150 MG, QD
     Route: 048
  9. MECOBALAMIN [Concomitant]
     Route: 048
  10. ZOLPIDEM [Concomitant]
     Dosage: UNK
     Route: 048
  11. PANCREATIC ENZYMES [Concomitant]
     Dosage: UNK
     Route: 048

REACTIONS (4)
  - SUICIDE ATTEMPT [None]
  - HYPOGLYCAEMIC UNCONSCIOUSNESS [None]
  - INTENTIONAL OVERDOSE [None]
  - ANTI-INSULIN ANTIBODY POSITIVE [None]
